FAERS Safety Report 9341069 (Version 1)
Quarter: 2013Q2

REPORT INFORMATION
  Report Type: Spontaneous
  Country: FR (occurrence: FR)
  Receive Date: 20130610
  Receipt Date: 20130610
  Transmission Date: 20140414
  Serious: Yes (Hospitalization)
  Sender: FDA-Public Use
  Company Number: FR-ASTRAZENECA-2013SE40261

PATIENT
  Age: 75 Year
  Sex: Male

DRUGS (2)
  1. BRILIQUE [Suspect]
     Indication: ACUTE CORONARY SYNDROME
     Route: 048
     Dates: start: 2013
  2. KARDEGIC [Concomitant]
     Indication: ACUTE CORONARY SYNDROME

REACTIONS (1)
  - Anaemia [Not Recovered/Not Resolved]
